FAERS Safety Report 12531416 (Version 1)
Quarter: 2016Q3

REPORT INFORMATION
  Report Type: Spontaneous
  Country: US (occurrence: US)
  Receive Date: 20160706
  Receipt Date: 20160706
  Transmission Date: 20161109
  Serious: No
  Sender: FDA-Public Use
  Company Number: US-MALLINCKRODT-T201602045

PATIENT
  Age: 22 Year
  Sex: Male
  Weight: 86 kg

DRUGS (2)
  1. OXYCODONE [Suspect]
     Active Substance: OXYCODONE
     Indication: DIABETIC NEUROPATHY
     Dosage: 30 MG TID
     Route: 048
     Dates: start: 201505
  2. NOVOLOG [Concomitant]
     Active Substance: INSULIN ASPART
     Dosage: 1.6 UNITS/HOUR AND BOLUS EVERY TIME EAT OR DRINK
     Route: 065

REACTIONS (1)
  - Blood glucose decreased [Not Recovered/Not Resolved]

NARRATIVE: CASE EVENT DATE: 201505
